FAERS Safety Report 8906024 (Version 1)
Quarter: 2012Q4

REPORT INFORMATION
  Report Type: 
  Country: FR (occurrence: FR)
  Receive Date: 20121109
  Receipt Date: 20121109
  Transmission Date: 20130627
  Serious: Yes (Hospitalization)
  Sender: FDA-Public Use
  Company Number: FR-GLAXOSMITHKLINE-B0841889A

PATIENT
  Age: 84 Year
  Sex: Male
  Weight: 59.5 kg

DRUGS (13)
  1. ZOVIRAX [Suspect]
     Indication: MENINGOENCEPHALITIS HERPETIC
     Dosage: 750MG Three times per day
     Route: 042
     Dates: start: 20121010
  2. CLAMOXYL [Suspect]
     Indication: ENCEPHALITIS
     Route: 042
     Dates: start: 20121010
  3. CLAFORAN [Concomitant]
     Indication: ENCEPHALITIS
     Dates: start: 20121010, end: 20121012
  4. LOVENOX [Concomitant]
     Dosage: .4ML Per day
     Route: 058
     Dates: start: 201210
  5. POTASSIUM CHLORIDE [Concomitant]
     Dates: start: 201210
  6. GLUCOSE (G5) [Concomitant]
     Dosage: 1000ML per day
     Dates: start: 201210
  7. SECTRAL [Concomitant]
     Dosage: 100MG Twice per day
  8. PLAVIX [Concomitant]
     Dosage: 75MG Per day
  9. ELISOR [Concomitant]
     Dosage: 20MG Per day
  10. OMEPRAZOLE [Concomitant]
     Dosage: 20MG Per day
  11. LERCAN [Concomitant]
     Dosage: 20MG Per day
  12. CORTICOID [Concomitant]
     Indication: PSORIATIC ARTHROPATHY
     Route: 048
  13. HYDROCORTISONE HEMISUCCINATE [Concomitant]
     Dosage: 10MG Four times per day
     Dates: start: 201204

REACTIONS (1)
  - Renal failure acute [Not Recovered/Not Resolved]
